FAERS Safety Report 13449007 (Version 1)
Quarter: 2017Q2

REPORT INFORMATION
  Report Type: Spontaneous
  Country: JP (occurrence: JP)
  Receive Date: 20170417
  Receipt Date: 20170417
  Transmission Date: 20170830
  Serious: Yes (Other)
  Sender: FDA-Public Use
  Company Number: PHJP2017JP012373

PATIENT
  Sex: Male

DRUGS (3)
  1. FOIPAN [Concomitant]
     Active Substance: CAMOSTAT MESYLATE
     Indication: PANCREATIC DISORDER
     Dosage: UNK
     Route: 065
  2. URSO [Concomitant]
     Active Substance: URSODIOL
     Indication: PANCREATIC DISORDER
     Dosage: UNK
     Route: 065
  3. AZOPT [Suspect]
     Active Substance: BRINZOLAMIDE
     Indication: GLAUCOMA
     Dosage: UNK
     Route: 047

REACTIONS (2)
  - Arrhythmia [Unknown]
  - Concomitant disease aggravated [Unknown]
